FAERS Safety Report 25850742 (Version 1)
Quarter: 2025Q3

REPORT INFORMATION
  Report Type: Spontaneous
  Country: US (occurrence: US)
  Receive Date: 20250926
  Receipt Date: 20250926
  Transmission Date: 20251020
  Serious: Yes (Hospitalization)
  Sender: AMGEN
  Company Number: US-AMGEN-USASP2025189193

PATIENT
  Age: 44 Year
  Sex: Male
  Weight: 98 kg

DRUGS (8)
  1. BLINCYTO [Suspect]
     Active Substance: BLINATUMOMAB
     Indication: Myxoid liposarcoma
     Route: 040
     Dates: start: 20250822
  2. DULOXETINE [Concomitant]
     Active Substance: DULOXETINE
     Dates: start: 20250624
  3. GABAPENTIN [Concomitant]
     Active Substance: GABAPENTIN
     Dates: start: 20220407
  4. HYDROMORPHONE [Concomitant]
     Active Substance: HYDROMORPHONE
     Dates: start: 20250402
  5. MORPHINE [Concomitant]
     Active Substance: MORPHINE
     Dates: start: 20250611
  6. SENNOSIDES [Concomitant]
     Active Substance: SENNOSIDES
     Dates: start: 20220331
  7. LORAZEPAM [Concomitant]
     Active Substance: LORAZEPAM
     Dates: start: 20220524
  8. NALOXONE [Concomitant]
     Active Substance: NALOXONE
     Dates: start: 20220225

REACTIONS (1)
  - Immune effector cell-associated neurotoxicity syndrome [Recovered/Resolved]

NARRATIVE: CASE EVENT DATE: 20250910
